FAERS Safety Report 22189233 (Version 1)
Quarter: 2023Q2

REPORT INFORMATION
  Report Type: Other
  Country: CA (occurrence: CA)
  Receive Date: 20230410
  Receipt Date: 20230410
  Transmission Date: 20230722
  Serious: No
  Sender: FDA-Public Use
  Company Number: CA-TOLMAR, INC.-23CA039522

PATIENT
  Sex: Male

DRUGS (2)
  1. ELIGARD [Suspect]
     Active Substance: LEUPROLIDE ACETATE
     Indication: Prostate cancer
     Dosage: 45 MILLIGRAM, Q 6 MONTH
     Route: 058
     Dates: start: 20221007
  2. CABAZITAXEL [Concomitant]
     Active Substance: CABAZITAXEL
     Indication: Product used for unknown indication
     Dosage: PT HAS HAD 1 TREATMENT OF CHEMOTHERAPY, CABAZITAXEL. HE GOES OCT 19 AGAIN FOR 2ND CHEMOTHERAPY. SPOU

REACTIONS (2)
  - Prostatic specific antigen abnormal [Unknown]
  - General physical health deterioration [Unknown]
